FAERS Safety Report 14585614 (Version 3)
Quarter: 2018Q1

REPORT INFORMATION
  Report Type: Spontaneous
  Country: US (occurrence: US)
  Receive Date: 20180301
  Receipt Date: 20180319
  Transmission Date: 20180509
  Serious: Yes (Hospitalization, Other)
  Sender: FDA-Public Use
  Company Number: US-PFIZER INC-2018083479

PATIENT
  Age: 71 Year
  Sex: Female

DRUGS (1)
  1. ATROPINE SULFATE/DIPHENOXYLATE HYDROCHLORIDE [Suspect]
     Active Substance: ATROPINE SULFATE\DIPHENOXYLATE HYDROCHLORIDE
     Indication: DIARRHOEA
     Dosage: UNK, [DIPHENOXYLATE: 2.5MG/ATROPINE: 0.025 MG] (TAKE 2 TABLETS; DO NOT EXCEED FOUR DOSES IN 2)
     Route: 048

REACTIONS (10)
  - Pyrexia [Recovered/Resolved]
  - Staphylococcal infection [Unknown]
  - Asthenia [Recovered/Resolved]
  - Diarrhoea [Recovered/Resolved]
  - Dyspnoea [Unknown]
  - Abnormal behaviour [Recovered/Resolved]
  - Product use issue [Unknown]
  - Feeling abnormal [Unknown]
  - Memory impairment [Recovered/Resolved]
  - Blood glucose increased [Not Recovered/Not Resolved]

NARRATIVE: CASE EVENT DATE: 201709
